FAERS Safety Report 14977997 (Version 2)
Quarter: 2018Q2

REPORT INFORMATION
  Report Type: Spontaneous
  Country: US (occurrence: US)
  Receive Date: 20180606
  Receipt Date: 20180619
  Transmission Date: 20180711
  Serious: No
  Sender: FDA-Public Use
  Company Number: US-PFIZER INC-2018230879

PATIENT
  Age: 69 Year
  Sex: Female

DRUGS (2)
  1. OGEN [Suspect]
     Active Substance: ESTROPIPATE
     Dosage: UNK
  2. PREMARIN [Suspect]
     Active Substance: ESTROGENS, CONJUGATED
     Dosage: UNK

REACTIONS (1)
  - Drug ineffective [Unknown]
